FAERS Safety Report 5583362-1 (Version None)
Quarter: 2008Q1

REPORT INFORMATION
  Report Type: 
  Country: None (occurrence: None)
  Receive Date: 20080107
  Receipt Date: 20071226
  Transmission Date: 20080703
  Serious: Yes (Life-Threatening, Other)
  Sender: FDA-Public Use
  Company Number: PT-PFIZER INC-2007098817

PATIENT
  Sex: Female
  Weight: 66 kg

DRUGS (4)
  1. LYRICA [Suspect]
     Indication: NEURALGIA
     Route: 048
     Dates: start: 20070101, end: 20070601
  2. TRIMETAZIDINE [Concomitant]
  3. CALCIUM CARBONATE/COLECALCIFEROL [Concomitant]
  4. ALL OTHER THERAPEUTIC PRODUCTS [Concomitant]

REACTIONS (6)
  - AGITATION [None]
  - DIZZINESS [None]
  - GENERALISED OEDEMA [None]
  - LOCALISED OEDEMA [None]
  - SOMNOLENCE [None]
  - SUICIDAL IDEATION [None]
